FAERS Safety Report 19291825 (Version 2)
Quarter: 2021Q3

REPORT INFORMATION
  Report Type: Other
  Country: CA (occurrence: CA)
  Receive Date: 20210524
  Receipt Date: 20210726
  Transmission Date: 20211014
  Serious: Yes (Hospitalization, Other)
  Sender: FDA-Public Use
  Company Number: CA-TOLMAR, INC.-21CA027159

PATIENT
  Age: 78 Year
  Sex: Male

DRUGS (1)
  1. ELIGARD [Suspect]
     Active Substance: LEUPROLIDE ACETATE
     Indication: PROSTATE CANCER
     Dosage: 45 MG, Q 6 MONTH
     Route: 058
     Dates: start: 20201125

REACTIONS (10)
  - Lung consolidation [Unknown]
  - Atelectasis [Unknown]
  - Prostate cancer [Unknown]
  - Mobility decreased [Not Recovered/Not Resolved]
  - Anaemia of chronic disease [Recovering/Resolving]
  - Pleural effusion [Unknown]
  - Clostridium difficile colitis [Recovering/Resolving]
  - Oedema [Recovering/Resolving]
  - Gout [Recovering/Resolving]
  - Acute kidney injury [Recovered/Resolved]

NARRATIVE: CASE EVENT DATE: 20210419
